FAERS Safety Report 8312535-X (Version None)
Quarter: 2012Q2

REPORT INFORMATION
  Report Type: 
  Country: None (occurrence: None)
  Receive Date: 20120425
  Receipt Date: 20120419
  Transmission Date: 20120825
  Serious: Yes (Other)
  Sender: FDA-Public Use
  Company Number: PHHY2012BR025025

PATIENT
  Sex: Female
  Weight: 71 kg

DRUGS (6)
  1. METFORMIN HCL [Suspect]
     Indication: DIABETES MELLITUS
     Dosage: 2 DF (500 MG), UNK
  2. TOLTERODINE TARTRATE [Concomitant]
     Indication: URINARY INCONTINENCE
     Dosage: 4 MG, QD
     Dates: start: 20110101
  3. GALVUS MET [Suspect]
     Indication: DIABETES MELLITUS
     Dosage: 2 DF (1000 MG METF AND 50 MG VILDA), DAILY
  4. METFORMIN HCL [Suspect]
     Dosage: 2 DF (850 MG), DAILY
  5. AMARYL [Suspect]
     Indication: DIABETES MELLITUS
     Dosage: 1 DF, DAILY
  6. DIAMICRON [Concomitant]
     Indication: DIABETES MELLITUS
     Dosage: 60 MG, BID
     Dates: start: 20110101

REACTIONS (6)
  - HYPERTENSION [None]
  - WEIGHT DECREASED [None]
  - SINUSITIS [None]
  - HEART RATE INCREASED [None]
  - BLOOD GLUCOSE FLUCTUATION [None]
  - PRODUCTIVE COUGH [None]
